FAERS Safety Report 7012591-5 (Version None)
Quarter: 2010Q3

REPORT INFORMATION
  Report Type: 
  Country: None (occurrence: None)
  Receive Date: 20100914
  Receipt Date: 20100521
  Transmission Date: 20110219
  Serious: Yes (Other)
  Sender: FDA-Public Use
  Company Number: 2010064312

PATIENT
  Age: 49 Year
  Sex: Male

DRUGS (4)
  1. GLIPIZIDE [Suspect]
  2. LANTUS [Suspect]
     Indication: TYPE 2 DIABETES MELLITUS
     Dosage: 50 IU, 1X/DAY
     Dates: start: 20100401
  3. ACTOS [Suspect]
  4. GLUCOPHAGE [Suspect]

REACTIONS (1)
  - DIABETES MELLITUS INADEQUATE CONTROL [None]
